FAERS Safety Report 21800800 (Version 1)
Quarter: 2022Q4

REPORT INFORMATION
  Report Type: Spontaneous
  Country: FR (occurrence: FR)
  Receive Date: 20221230
  Receipt Date: 20221230
  Transmission Date: 20230113
  Serious: Yes (Hospitalization, Other)
  Sender: FDA-Public Use
  Company Number: None

PATIENT
  Age: 80 Year
  Sex: Male
  Weight: 74 kg

DRUGS (1)
  1. ELIQUIS [Suspect]
     Active Substance: APIXABAN
     Indication: Product used for unknown indication
     Route: 048
     Dates: start: 20221125, end: 20221125

REACTIONS (2)
  - Poisoning deliberate [Recovered/Resolved]
  - Prothrombin time ratio decreased [Recovered/Resolved]

NARRATIVE: CASE EVENT DATE: 20221125
